FAERS Safety Report 19712863 (Version 3)
Quarter: 2022Q1

REPORT INFORMATION
  Report Type: Spontaneous
  Country: DE (occurrence: DE)
  Receive Date: 20210816
  Receipt Date: 20220131
  Transmission Date: 20220423
  Serious: Yes (Hospitalization, Other)
  Sender: FDA-Public Use
  Company Number: DE-NOVARTISPH-NVSC2021DE184423

PATIENT
  Sex: Male
  Weight: 75 kg

DRUGS (4)
  1. DIOVAN [Suspect]
     Active Substance: VALSARTAN
     Indication: Hypertension
     Dosage: 1 DOSAGE FORM, QD (IN THE MORNING)
     Route: 065
     Dates: start: 2017, end: 2021
  2. DIOVAN [Suspect]
     Active Substance: VALSARTAN
     Dosage: UNK (1-0-1 / ONLY ONE TIME)
     Route: 065
     Dates: start: 202107, end: 202107
  3. DIOVAN [Suspect]
     Active Substance: VALSARTAN
     Dosage: 1 DOSAGE FORM, QD (IN THE MORNING)
     Route: 065
     Dates: start: 2021, end: 2021
  4. DIOVAN [Suspect]
     Active Substance: VALSARTAN
     Dosage: 1 DOSAGE FORM, QD (IN THE MORNING)
     Route: 065
     Dates: start: 2021

REACTIONS (13)
  - Hypoaesthesia [Recovered/Resolved]
  - Pain [Recovered/Resolved]
  - Hypoaesthesia oral [Recovered/Resolved]
  - Amnesia [Recovered/Resolved]
  - Accident [Recovered/Resolved]
  - Hypertension [Recovering/Resolving]
  - Syncope [Recovered/Resolved]
  - Myocardial infarction [Recovered/Resolved]
  - Blood brain barrier defect [Unknown]
  - CSF protein increased [Unknown]
  - CSF mononuclear cell count increased [Unknown]
  - Protein albumin ratio increased [Unknown]
  - Intentional overdose [Unknown]

NARRATIVE: CASE EVENT DATE: 20210701
